FAERS Safety Report 7064853-3 (Version None)
Quarter: 2010Q4

REPORT INFORMATION
  Report Type: 
  Country: None (occurrence: None)
  Receive Date: 20101027
  Receipt Date: 19880121
  Transmission Date: 20110411
  Serious: Yes (Death)
  Sender: FDA-Public Use
  Company Number: IT-ROCHE-880700001001

PATIENT
  Age: 6 Year
  Sex: Male

DRUGS (1)
  1. ROCEPHIN [Suspect]
     Indication: SEPSIS
     Route: 042
     Dates: start: 19871105, end: 19871116

REACTIONS (2)
  - CHOLELITHIASIS [None]
  - LEUKAEMIA [None]
